FAERS Safety Report 17510385 (Version 1)
Quarter: 2020Q1

REPORT INFORMATION
  Report Type: Spontaneous
  Country: US (occurrence: US)
  Receive Date: 20200306
  Receipt Date: 20200306
  Transmission Date: 20200409
  Serious: Yes (Hospitalization)
  Sender: FDA-Public Use
  Company Number: US-ELI_LILLY_AND_COMPANY-US202002012175

PATIENT
  Sex: Female

DRUGS (12)
  1. BASAGLAR [Suspect]
     Active Substance: INSULIN GLARGINE
     Dosage: 90 U, BID (60 UNITS AT BREAKFAST AND 30 UNITS AT DINNER)
     Route: 058
  2. BASAGLAR [Suspect]
     Active Substance: INSULIN GLARGINE
     Indication: TYPE 2 DIABETES MELLITUS
     Dosage: 90 U, BID (60 UNITS AT BREAKFAST AND 30 UNITS AT DINNER)
     Route: 058
  3. BASAGLAR [Suspect]
     Active Substance: INSULIN GLARGINE
     Dosage: 90 U, BID (60 UNITS AT BREAKFAST AND 30 UNITS AT DINNER)
     Route: 058
  4. BASAGLAR [Suspect]
     Active Substance: INSULIN GLARGINE
     Dosage: 90 U, BID (60 UNITS AT BREAKFAST AND 30 UNITS AT DINNER)
     Route: 058
  5. BASAGLAR [Suspect]
     Active Substance: INSULIN GLARGINE
     Indication: TYPE 2 DIABETES MELLITUS
     Dosage: 90 U, BID (60 UNITS AT BREAKFAST AND 30 UNITS AT DINNER)
     Route: 058
  6. BASAGLAR [Suspect]
     Active Substance: INSULIN GLARGINE
     Dosage: 90 U, BID (60 UNITS AT BREAKFAST AND 30 UNITS AT DINNER)
     Route: 058
  7. BASAGLAR [Suspect]
     Active Substance: INSULIN GLARGINE
     Dosage: 90 U, BID (60 UNITS AT BREAKFAST AND 30 UNITS AT DINNER)
     Route: 058
  8. BASAGLAR [Suspect]
     Active Substance: INSULIN GLARGINE
     Dosage: 90 U, BID (60 UNITS AT BREAKFAST AND 30 UNITS AT DINNER)
     Route: 058
  9. BASAGLAR [Suspect]
     Active Substance: INSULIN GLARGINE
     Dosage: 90 U, BID (60 UNITS AT BREAKFAST AND 30 UNITS AT DINNER)
     Route: 058
  10. BASAGLAR [Suspect]
     Active Substance: INSULIN GLARGINE
     Dosage: 90 U, BID (60 UNITS AT BREAKFAST AND 30 UNITS AT DINNER)
     Route: 058
  11. APIDRA [Concomitant]
     Active Substance: INSULIN GLULISINE
     Indication: TYPE 2 DIABETES MELLITUS
     Dosage: 22 U, UNKNOWN
     Route: 065
  12. BASAGLAR [Suspect]
     Active Substance: INSULIN GLARGINE
     Dosage: 90 U, BID (60 UNITS AT BREAKFAST AND 30 UNITS AT DINNER)
     Route: 058

REACTIONS (5)
  - Inappropriate schedule of product administration [Recovered/Resolved]
  - Hypoglycaemia [Unknown]
  - Pneumonia [Recovering/Resolving]
  - Visual impairment [Unknown]
  - Blood glucose increased [Recovering/Resolving]
